FAERS Safety Report 8385943-9 (Version None)
Quarter: 2012Q2

REPORT INFORMATION
  Report Type: 
  Country: None (occurrence: None)
  Receive Date: 20120525
  Receipt Date: 20120511
  Transmission Date: 20120825
  Serious: Yes (Other)
  Sender: FDA-Public Use
  Company Number: US-JNJFOC-20120109723

PATIENT
  Sex: Male
  Weight: 92.08 kg

DRUGS (3)
  1. METFORMIN HCL [Concomitant]
     Indication: DIABETES MELLITUS
     Route: 048
     Dates: start: 20020101
  2. ACTOS [Concomitant]
     Indication: DIABETES MELLITUS
     Route: 048
     Dates: start: 20020101
  3. REMICADE [Suspect]
     Indication: RHEUMATOID ARTHRITIS
     Route: 042
     Dates: start: 20080101, end: 20111001

REACTIONS (14)
  - HYPERTENSION [None]
  - RHINORRHOEA [None]
  - ORAL CANDIDIASIS [None]
  - EUSTACHIAN TUBE DYSFUNCTION [None]
  - RASH [None]
  - STOMATITIS [None]
  - GASTRIC DISORDER [None]
  - BARRETT'S OESOPHAGUS [None]
  - DIABETES MELLITUS [None]
  - INFECTION [None]
  - ORAL FUNGAL INFECTION [None]
  - FUNGAL OESOPHAGITIS [None]
  - PHARYNGITIS [None]
  - GASTROOESOPHAGEAL REFLUX DISEASE [None]
